FAERS Safety Report 8115523-1 (Version None)
Quarter: 2012Q1

REPORT INFORMATION
  Report Type: 
  Country: None (occurrence: None)
  Receive Date: 20120206
  Receipt Date: 20120126
  Transmission Date: 20120608
  Serious: Yes (Death, Life-Threatening, Hospitalization)
  Sender: FDA-Public Use
  Company Number: US-JNJFOC-20110611913

PATIENT
  Sex: Female
  Weight: 76.2 kg

DRUGS (41)
  1. DARUNAVIR ETHANOLATE [Suspect]
     Indication: HIV INFECTION
     Route: 048
     Dates: start: 20110816, end: 20110904
  2. METHADONE HCL [Concomitant]
     Dates: start: 20090818
  3. LAC-HYDRIN [Concomitant]
     Indication: DRY SKIN
     Route: 061
     Dates: start: 20110617
  4. MULTI-VITAMINS [Concomitant]
  5. VALSARTAN [Concomitant]
  6. RALTEGRAVIR [Concomitant]
     Route: 048
     Dates: start: 20110329, end: 20110531
  7. METHADONE HCL [Concomitant]
     Dates: start: 20110805
  8. LIPITOR [Concomitant]
     Route: 048
     Dates: start: 20110826
  9. PROMETHAZINE W/ CODEINE [Concomitant]
     Indication: UPPER RESPIRATORY TRACT INFECTION
  10. ULTRACET [Concomitant]
  11. RITONAVIR [Suspect]
     Route: 048
     Dates: start: 20110816, end: 20110904
  12. TRUVADA [Concomitant]
     Route: 048
     Dates: start: 20090922
  13. ADVAIR DISKUS 100/50 [Concomitant]
     Route: 055
     Dates: start: 20091002
  14. STROVITE [Concomitant]
     Route: 048
     Dates: start: 20060707
  15. ABACAVIR [Suspect]
     Indication: HIV INFECTION
     Dates: start: 20110816
  16. DIOVAN HCT [Concomitant]
     Route: 048
     Dates: start: 20110805
  17. VALTREX [Concomitant]
     Route: 048
     Dates: start: 20091019
  18. PERCOCET [Concomitant]
     Dates: start: 20101110
  19. ALLEGRA [Concomitant]
     Route: 048
     Dates: start: 20110722
  20. LOTRISONE [Concomitant]
     Dates: start: 20110722
  21. WESTCORT [Concomitant]
     Route: 061
     Dates: start: 20110617
  22. PROVENTIL [Concomitant]
     Indication: DYSPNOEA
     Route: 055
     Dates: start: 20040224
  23. PROMETHAZINE W/ CODEINE [Concomitant]
     Indication: COUGH
  24. RITONAVIR [Suspect]
     Indication: HIV INFECTION
     Route: 048
     Dates: start: 20110329, end: 20110531
  25. NORVASC [Concomitant]
     Route: 048
     Dates: start: 20100921
  26. ZITHROMAX [Concomitant]
     Dates: start: 20101123
  27. DARUNAVIR ETHANOLATE [Suspect]
     Route: 048
     Dates: start: 20110329, end: 20110531
  28. RALTEGRAVIR [Concomitant]
     Indication: HIV INFECTION
     Route: 048
     Dates: start: 20110816, end: 20110904
  29. STROVITE FORTE [Concomitant]
     Route: 048
     Dates: start: 20030821
  30. DIOVAN HCT [Concomitant]
     Route: 048
     Dates: start: 20090922
  31. POTASSIUM CHLORIDE [Concomitant]
     Route: 048
     Dates: start: 20091123
  32. ADVAIR DISKUS 100/50 [Concomitant]
     Route: 055
     Dates: start: 20070820
  33. IBUPROFEN [Concomitant]
     Route: 048
     Dates: start: 20070611
  34. METFORMIN HCL [Concomitant]
     Route: 048
     Dates: start: 20110502
  35. ETRAVIRINE [Suspect]
     Indication: HIV INFECTION
     Route: 048
     Dates: start: 20110329, end: 20110531
  36. TRUVADA [Concomitant]
     Indication: HIV INFECTION
     Route: 048
     Dates: start: 20110329, end: 20110531
  37. AMBIEN [Concomitant]
     Route: 048
     Dates: start: 20091020
  38. LOMOTIL [Concomitant]
     Indication: DIARRHOEA
     Route: 048
     Dates: start: 20100222
  39. SEROQUEL [Concomitant]
     Dates: start: 20110311
  40. LAMIVUDINE [Concomitant]
     Indication: HIV INFECTION
     Route: 048
     Dates: start: 20110816
  41. BACTRIM [Concomitant]
     Route: 048
     Dates: start: 20090918

REACTIONS (5)
  - UROSEPSIS [None]
  - SEPTIC SHOCK [None]
  - RENAL FAILURE ACUTE [None]
  - HEPATIC FAILURE [None]
  - RASH [None]
